FAERS Safety Report 14988246 (Version 4)
Quarter: 2018Q2

REPORT INFORMATION
  Report Type: Spontaneous
  Country: US (occurrence: US)
  Receive Date: 20180608
  Receipt Date: 20180618
  Transmission Date: 20180711
  Serious: No
  Sender: FDA-Public Use
  Company Number: US-PFIZER INC-2018233197

PATIENT
  Sex: Female
  Weight: 45.35 kg

DRUGS (2)
  1. CHANTIX [Suspect]
     Active Substance: VARENICLINE TARTRATE
     Dosage: UNK, 2X/DAY (ONE IN THE MORNING AND ONE AT NIGHT)
     Dates: start: 20180605
  2. CHANTIX [Suspect]
     Active Substance: VARENICLINE TARTRATE
     Dosage: ^HIGHER DOSE^ [NIGHT DOSE]

REACTIONS (2)
  - Insomnia [Not Recovered/Not Resolved]
  - Nightmare [Not Recovered/Not Resolved]
